FAERS Safety Report 5056954-6 (Version None)
Quarter: 2006Q2

REPORT INFORMATION
  Report Type: 
  Country: None (occurrence: None)
  Receive Date: 20060621
  Receipt Date: 20060309
  Transmission Date: 20061013
  Serious: Yes (Other)
  Sender: FDA-Public Use
  Company Number: 1-13678015

PATIENT
  Sex: Female

DRUGS (1)
  1. ZONISAMIDE [Suspect]
     Indication: CONVULSION
     Dosage: 200 MG TWICE DAILY, ORAL
     Route: 048
     Dates: start: 20060203, end: 20060226

REACTIONS (1)
  - CONVULSION [None]
